FAERS Safety Report 5348851-3 (Version None)
Quarter: 2007Q2

REPORT INFORMATION
  Report Type: 
  Country: None (occurrence: None)
  Receive Date: 20070607
  Receipt Date: 20070529
  Transmission Date: 20071010
  Serious: Yes (Death, Other)
  Sender: FDA-Public Use
  Company Number: HQWYE251820JUL04

PATIENT
  Sex: Female
  Weight: 79 kg

DRUGS (1)
  1. PREMPRO [Suspect]
     Indication: DRUG USE FOR UNKNOWN INDICATION
     Dosage: DOSE UNKNOWN
     Route: 065

REACTIONS (1)
  - BREAST CANCER METASTATIC [None]
